FAERS Safety Report 4607891-X (Version None)
Quarter: 2005Q1

REPORT INFORMATION
  Report Type: 
  Country: None (occurrence: None)
  Receive Date: 20050310
  Receipt Date: 20050228
  Transmission Date: 20050727
  Serious: Yes (Hospitalization)
  Sender: FDA-Public Use
  Company Number: 2005SE01204

PATIENT
  Age: 69 Year
  Sex: Female

DRUGS (8)
  1. BLOPRESS [Suspect]
     Indication: HYPERTENSION
     Dosage: 8 MG DAILY PO
     Route: 048
     Dates: start: 20041018, end: 20050217
  2. GASTER D [Suspect]
     Dosage: 20 MG QD PO
     Route: 048
     Dates: end: 20050217
  3. AMLODIN [Concomitant]
  4. ADALAT [Concomitant]
  5. GLIMICRON [Concomitant]
  6. THYRADIN   S [Concomitant]
  7. MEDET [Concomitant]
  8. ALDOMET [Concomitant]

REACTIONS (1)
  - INTERSTITIAL LUNG DISEASE [None]
